FAERS Safety Report 6885150-2 (Version None)
Quarter: 2010Q3

REPORT INFORMATION
  Report Type: 
  Country: None (occurrence: None)
  Receive Date: 20100729
  Receipt Date: 20071219
  Transmission Date: 20110219
  Serious: No
  Sender: FDA-Public Use
  Company Number: US-PFIZER INC-2007091185

PATIENT
  Sex: Male
  Weight: 92.99 kg

DRUGS (2)
  1. CELEBREX [Suspect]
     Indication: OSTEOARTHRITIS
     Dates: start: 20070801, end: 20070801
  2. POTASSIUM CHLORIDE [Concomitant]
     Dosage: 20MEQ DAILY

REACTIONS (3)
  - CHEST PAIN [None]
  - HAEMOGLOBIN DECREASED [None]
  - HYPERGLYCAEMIA [None]
